FAERS Safety Report 15723150 (Version 1)
Quarter: 2018Q4

REPORT INFORMATION
  Report Type: Spontaneous
  Country: US (occurrence: US)
  Receive Date: 20181214
  Receipt Date: 20181214
  Transmission Date: 20190205
  Serious: Yes (Hospitalization)
  Sender: FDA-Public Use
  Company Number: None

PATIENT
  Age: 51 Year
  Sex: Female

DRUGS (8)
  1. CEPHALEXIN, CETIRIZINE [Concomitant]
  2. FEROSUL, FUROSEMIDE [Concomitant]
  3. LETAIRIS, LEVOTHYROXIN [Concomitant]
  4. ADCIRCA [Suspect]
     Active Substance: TADALAFIL
     Indication: PULMONARY HYPERTENSION
     Route: 048
     Dates: start: 20180725
  5. DOK, FAMOTIDINE [Concomitant]
  6. POT CHLORIDE, PREDNISONE [Concomitant]
  7. SENNA LAXATIVE, SILDENAFIL [Concomitant]
  8. TRAMADOL, VITAMIN C [Concomitant]

REACTIONS (1)
  - Blood iron decreased [None]

NARRATIVE: CASE EVENT DATE: 20181206
